FAERS Safety Report 5213753-X (Version None)
Quarter: 2007Q1

REPORT INFORMATION
  Report Type: 
  Country: None (occurrence: None)
  Receive Date: 20070119
  Receipt Date: 20070109
  Transmission Date: 20070707
  Serious: Yes (Death)
  Sender: FDA-Public Use
  Company Number: CL-PFIZER INC-2006155841

PATIENT
  Sex: Female

DRUGS (4)
  1. PREGABALIN [Suspect]
     Indication: PAIN
     Route: 048
  2. IRON W/FOLIC ACID [Suspect]
     Indication: ANAEMIA
     Dates: start: 20061001, end: 20061215
  3. CLONAZEPAM [Suspect]
  4. ANTIDEPRESSANTS [Suspect]

REACTIONS (1)
  - HEPATIC FAILURE [None]
